FAERS Safety Report 7288093-8 (Version None)
Quarter: 2011Q1

REPORT INFORMATION
  Report Type: 
  Country: None (occurrence: None)
  Receive Date: 20110211
  Receipt Date: 20110207
  Transmission Date: 20110831
  Serious: Yes (Hospitalization)
  Sender: FDA-Public Use
  Company Number: US-ABBOTT-11P-163-0703447-00

PATIENT
  Sex: Male
  Weight: 83.99 kg

DRUGS (1)
  1. HUMIRA [Suspect]
     Indication: CROHN'S DISEASE
     Dates: start: 20080101

REACTIONS (6)
  - WEIGHT DECREASED [None]
  - DIVERTICULITIS [None]
  - ENTERITIS INFECTIOUS [None]
  - CROHN'S DISEASE [None]
  - SMALL INTESTINE ULCER [None]
  - ABDOMINAL PAIN [None]
